FAERS Safety Report 5939937-0 (Version None)
Quarter: 2008Q4

REPORT INFORMATION
  Report Type: 
  Country: None (occurrence: None)
  Receive Date: 20081104
  Receipt Date: 20081027
  Transmission Date: 20090506
  Serious: Yes (Other)
  Sender: FDA-Public Use
  Company Number: US-BAYER-200836853NA

PATIENT
  Sex: Female

DRUGS (1)
  1. MIRENA [Suspect]
     Indication: DRUG USE FOR UNKNOWN INDICATION
     Route: 015
     Dates: start: 20080430

REACTIONS (7)
  - ABDOMINAL PAIN LOWER [None]
  - CERVICAL DYSPLASIA [None]
  - DIZZINESS [None]
  - DYSPAREUNIA [None]
  - NAUSEA [None]
  - PROCEDURAL PAIN [None]
  - VAGINAL HAEMORRHAGE [None]
